FAERS Safety Report 4482577-3 (Version None)
Quarter: 2004Q4

REPORT INFORMATION
  Report Type: 
  Country: None (occurrence: None)
  Receive Date: 20041022
  Receipt Date: 20041013
  Transmission Date: 20050328
  Serious: Yes (Other)
  Sender: FDA-Public Use
  Company Number: US-JNJFOC-20041004197

PATIENT
  Age: 39 Year
  Sex: Male

DRUGS (3)
  1. DURAGESIC [Suspect]
     Route: 062
  2. LORTAB [Concomitant]
     Route: 049
  3. LORTAB [Concomitant]
     Indication: PAIN
     Route: 049

REACTIONS (7)
  - CEREBROVASCULAR ACCIDENT [None]
  - DYSPHEMIA [None]
  - HEADACHE [None]
  - MEMORY IMPAIRMENT [None]
  - MYDRIASIS [None]
  - PHARMACEUTICAL PRODUCT COMPLAINT [None]
  - TREMOR [None]
